FAERS Safety Report 10592860 (Version 1)
Quarter: 2014Q4

REPORT INFORMATION
  Report Type: Spontaneous
  Country: US (occurrence: None)
  Receive Date: 20141118
  Receipt Date: 20141118
  Transmission Date: 20150529
  Serious: Yes (Hospitalization, Disabling)
  Sender: FDA-Public Use
  Company Number: None

PATIENT
  Age: 34 Year
  Sex: Male
  Weight: 86.18 kg

DRUGS (1)
  1. LEVOFLOXACIN. [Suspect]
     Active Substance: LEVOFLOXACIN
     Indication: PROSTATE INFECTION
     Dosage: 1 PILL, ONCE DAILY, TAKEN BY MOUTH
     Route: 048
     Dates: start: 20130306, end: 20130312

REACTIONS (14)
  - Skin burning sensation [None]
  - Peripheral coldness [None]
  - Pain in extremity [None]
  - Muscular weakness [None]
  - Arthralgia [None]
  - Neuralgia [None]
  - Abasia [None]
  - Joint crepitation [None]
  - Muscle spasms [None]
  - Fatigue [None]
  - Spinal pain [None]
  - Skin discolouration [None]
  - Tendon pain [None]
  - Pain [None]

NARRATIVE: CASE EVENT DATE: 20130313
